FAERS Safety Report 5244254-0 (Version None)
Quarter: 2007Q1

REPORT INFORMATION
  Report Type: 
  Country: None (occurrence: None)
  Receive Date: 20070216
  Receipt Date: 20070207
  Transmission Date: 20070707
  Serious: Yes (Life-Threatening)
  Sender: FDA-Public Use
  Company Number: GXKR2007GB01502

PATIENT
  Age: 68 Year
  Weight: 70 kg

DRUGS (1)
  1. AMIODARONE HCL [Suspect]
     Indication: VENTRICULAR TACHYCARDIA
     Dosage: 100 MG, ORAL
     Route: 048
     Dates: start: 20060717, end: 20061124

REACTIONS (1)
  - DEPRESSION SUICIDAL [None]
